FAERS Safety Report 26197088 (Version 2)
Quarter: 2025Q4

REPORT INFORMATION
  Report Type: Spontaneous
  Country: US (occurrence: US)
  Receive Date: 20251224
  Receipt Date: 20251231
  Transmission Date: 20260117
  Serious: Yes (Other)
  Sender: PFIZER
  Company Number: US-PFIZER INC-202500248245

PATIENT
  Sex: Male

DRUGS (1)
  1. NORPACE CR [Suspect]
     Active Substance: DISOPYRAMIDE PHOSPHATE
     Dosage: 600 MG, DAILY

REACTIONS (5)
  - Urinary retention [Unknown]
  - Headache [Unknown]
  - Hypoglycaemia [Unknown]
  - Dizziness [Unknown]
  - Hunger [Unknown]
